FAERS Safety Report 17375937 (Version 6)
Quarter: 2020Q1

REPORT INFORMATION
  Report Type: Report from Study
  Country: US (occurrence: US)
  Receive Date: 20200206
  Receipt Date: 20200318
  Transmission Date: 20200409
  Serious: Yes (Life-Threatening, Hospitalization, Disabling, Other)
  Sender: FDA-Public Use
  Company Number: US-ROCHE-2538232

PATIENT
  Age: 92 Year
  Sex: Female
  Weight: 66.9 kg

DRUGS (50)
  1. ACETAMINOPHEN. [Concomitant]
     Active Substance: ACETAMINOPHEN
     Indication: PAIN
     Route: 048
  2. LIDOCAINE. [Concomitant]
     Active Substance: LIDOCAINE
     Indication: OSTEOARTHRITIS
     Dosage: 1 OTHER DOSE
     Route: 061
     Dates: start: 20200208, end: 20200213
  3. METHOTREXATE. [Concomitant]
     Active Substance: METHOTREXATE
     Dosage: NASOGASTRIC
     Route: 065
     Dates: start: 20200205
  4. CALCIUM GLUCONATE. [Concomitant]
     Active Substance: CALCIUM GLUCONATE
     Route: 042
     Dates: start: 20200201, end: 20200201
  5. ACETAMINOPHEN. [Concomitant]
     Active Substance: ACETAMINOPHEN
     Route: 042
     Dates: start: 20200202, end: 20200202
  6. NYSTATIN. [Concomitant]
     Active Substance: NYSTATIN
     Dosage: DOSE 2 OTHER
     Route: 061
     Dates: start: 20200209, end: 20200213
  7. NARCAN [Concomitant]
     Active Substance: NALOXONE HYDROCHLORIDE
  8. CLOPIDOGREL [Concomitant]
     Active Substance: CLOPIDOGREL BISULFATE
     Route: 050
     Dates: start: 20200209
  9. HEPARIN [Concomitant]
     Active Substance: HEPARIN SODIUM
     Route: 058
     Dates: start: 20200202, end: 20200205
  10. ALTEPLASE. [Concomitant]
     Active Substance: ALTEPLASE
     Route: 042
     Dates: start: 20200202, end: 20200202
  11. PIPERACILLIN AND TAZOBACTAM [Concomitant]
     Active Substance: PIPERACILLIN SODIUM\TAZOBACTAM SODIUM
     Route: 042
     Dates: start: 20200202, end: 20200202
  12. ACETAMINOPHEN. [Concomitant]
     Active Substance: ACETAMINOPHEN
     Route: 050
     Dates: start: 20200131, end: 20200131
  13. FENTANYL. [Concomitant]
     Active Substance: FENTANYL
     Indication: PAIN
     Route: 042
     Dates: start: 20200127, end: 20200127
  14. SODIUM CHLORIDE 0.9% [Concomitant]
     Active Substance: SODIUM CHLORIDE
     Route: 042
     Dates: start: 20200127, end: 20200127
  15. POTASSIUM CHLORIDE. [Concomitant]
     Active Substance: POTASSIUM CHLORIDE
     Dosage: 20
     Route: 050
     Dates: start: 20200129, end: 20200129
  16. POTASSIUM CHLORIDE. [Concomitant]
     Active Substance: POTASSIUM CHLORIDE
     Dosage: 10
     Route: 042
     Dates: start: 20200128, end: 20200128
  17. PHYTONADIONE. [Concomitant]
     Active Substance: PHYTONADIONE
     Route: 042
     Dates: start: 20200128, end: 20200128
  18. CALCIUM GLUCONATE. [Concomitant]
     Active Substance: CALCIUM GLUCONATE
     Route: 042
     Dates: start: 20200129, end: 20200129
  19. PIPERACILLIN AND TAZOBACTAM [Concomitant]
     Active Substance: PIPERACILLIN SODIUM\TAZOBACTAM SODIUM
     Route: 042
     Dates: start: 20200207, end: 20200209
  20. TENECTEPLASE [Suspect]
     Active Substance: TENECTEPLASE
     Indication: THROMBOLYSIS
     Route: 042
     Dates: start: 20200127
  21. ECONAZOLE. [Concomitant]
     Active Substance: ECONAZOLE NITRATE
     Indication: FUNGAL INFECTION
     Dosage: 1
     Route: 061
  22. FAMOTIDINE. [Concomitant]
     Active Substance: FAMOTIDINE
     Indication: GASTROOESOPHAGEAL REFLUX DISEASE
     Route: 048
     Dates: start: 20200128, end: 20200128
  23. SODIUM CHLORIDE 0.9% [Concomitant]
     Active Substance: SODIUM CHLORIDE
     Route: 042
     Dates: start: 20200129, end: 20200129
  24. SODIUM CHLORIDE. [Concomitant]
     Active Substance: SODIUM CHLORIDE
     Route: 042
     Dates: start: 20200203, end: 20200203
  25. SODIUM CHLORIDE. [Concomitant]
     Active Substance: SODIUM CHLORIDE
     Route: 042
     Dates: start: 20200128
  26. POTASSIUM CHLORIDE. [Concomitant]
     Active Substance: POTASSIUM CHLORIDE
     Dosage: 30
     Route: 050
     Dates: start: 20200131, end: 20200131
  27. BARIUM SULFATE [Concomitant]
     Active Substance: BARIUM SULFATE
     Route: 048
     Dates: start: 20200206, end: 20200206
  28. PIPERACILLIN AND TAZOBACTAM [Concomitant]
     Active Substance: PIPERACILLIN SODIUM\TAZOBACTAM SODIUM
     Indication: URINARY TRACT INFECTION
     Route: 042
     Dates: start: 20200202, end: 20200209
  29. ACETAMINOPHEN. [Concomitant]
     Active Substance: ACETAMINOPHEN
     Route: 050
     Dates: start: 20200202, end: 20200206
  30. FOSAMAX [Concomitant]
     Active Substance: ALENDRONATE SODIUM
     Indication: OSTEOARTHRITIS
     Route: 048
  31. NYSTATIN. [Concomitant]
     Active Substance: NYSTATIN
     Indication: FUNGAL INFECTION
     Dosage: 1
     Route: 061
  32. LIDOCAINE. [Concomitant]
     Active Substance: LIDOCAINE
     Indication: PAIN
     Route: 042
     Dates: start: 20200127, end: 20200127
  33. NEOSYNEPHRINE [Concomitant]
     Active Substance: PHENYLEPHRINE HYDROCHLORIDE
     Indication: HYPOTENSION
     Route: 042
     Dates: start: 20200128, end: 20200128
  34. METHOTREXATE. [Concomitant]
     Active Substance: METHOTREXATE
     Indication: RHEUMATOID ARTHRITIS
     Route: 048
  35. SODIUM CHLORIDE. [Concomitant]
     Active Substance: SODIUM CHLORIDE
     Route: 042
     Dates: start: 20200202, end: 20200202
  36. SODIUM CHLORIDE. [Concomitant]
     Active Substance: SODIUM CHLORIDE
     Route: 042
     Dates: start: 20200209, end: 20200211
  37. CLOPIDOGREL [Concomitant]
     Active Substance: CLOPIDOGREL BISULFATE
     Indication: CEREBROVASCULAR ACCIDENT PROPHYLAXIS
     Route: 050
     Dates: start: 20200129, end: 20200129
  38. DICLOFENAC [Concomitant]
     Active Substance: DICLOFENAC
     Indication: OSTEOARTHRITIS
     Route: 061
  39. HEPARIN [Concomitant]
     Active Substance: HEPARIN SODIUM
     Route: 058
     Dates: start: 20200131, end: 20200202
  40. FAMOTIDINE. [Concomitant]
     Active Substance: FAMOTIDINE
     Route: 050
     Dates: start: 20200210, end: 20200213
  41. NAPROXEN. [Concomitant]
     Active Substance: NAPROXEN
     Indication: OSTEOARTHRITIS
     Route: 048
  42. NYSTATIN. [Concomitant]
     Active Substance: NYSTATIN
     Indication: CANDIDA INFECTION
     Route: 048
     Dates: start: 20200131
  43. NYSTATIN. [Concomitant]
     Active Substance: NYSTATIN
     Route: 061
     Dates: start: 20200207, end: 20200213
  44. SODIUM CHLORIDE 0.9% [Concomitant]
     Active Substance: SODIUM CHLORIDE
     Route: 042
     Dates: start: 20200128, end: 20200128
  45. SODIUM CHLORIDE. [Concomitant]
     Active Substance: SODIUM CHLORIDE
     Route: 042
     Dates: start: 20200128
  46. PIPERACILLIN AND TAZOBACTAM [Concomitant]
     Active Substance: PIPERACILLIN SODIUM\TAZOBACTAM SODIUM
     Route: 042
     Dates: start: 20200209, end: 20200210
  47. BUMETANIDE. [Concomitant]
     Active Substance: BUMETANIDE
     Indication: HYPERTENSION
     Route: 048
  48. CEFTRIAXONE. [Concomitant]
     Active Substance: CEFTRIAXONE
     Indication: URINARY TRACT INFECTION
     Route: 042
     Dates: start: 20200201, end: 20200202
  49. MAGNESIUM SULFATE. [Concomitant]
     Active Substance: MAGNESIUM SULFATE
     Route: 042
     Dates: start: 20200201, end: 20200201
  50. TRAZODONE [Concomitant]
     Active Substance: TRAZODONE HYDROCHLORIDE
     Indication: DELIRIUM
     Route: 050
     Dates: start: 20200210, end: 20200212

REACTIONS (4)
  - Hypotension [Recovering/Resolving]
  - Anaemia [Unknown]
  - Neurological symptom [Recovered/Resolved with Sequelae]
  - Cerebral artery occlusion [Unknown]

NARRATIVE: CASE EVENT DATE: 20200128
